FAERS Safety Report 9642484 (Version 1)
Quarter: 2013Q4

REPORT INFORMATION
  Report Type: Spontaneous
  Country: US (occurrence: US)
  Receive Date: 20131024
  Receipt Date: 20131024
  Transmission Date: 20140711
  Serious: Yes (Hospitalization)
  Sender: FDA-Public Use
  Company Number: US-AMGEN-USASP2013074669

PATIENT
  Age: 64 Year
  Sex: Female

DRUGS (1)
  1. ENBREL [Suspect]
     Indication: PSORIATIC ARTHROPATHY
     Dosage: 50 MG, Q2WK
     Route: 065
     Dates: start: 20090115

REACTIONS (5)
  - Post procedural bile leak [Recovered/Resolved]
  - Respiratory failure [Recovered/Resolved]
  - Cholecystitis infective [Recovered/Resolved]
  - Sepsis [Recovered/Resolved]
  - Asthenia [Unknown]
